FAERS Safety Report 9620311 (Version 1)
Quarter: 2013Q4

REPORT INFORMATION
  Report Type: Spontaneous
  Country: US (occurrence: US)
  Receive Date: 20131014
  Receipt Date: 20131014
  Transmission Date: 20140711
  Serious: No
  Sender: FDA-Public Use
  Company Number: US-ALLERGAN-1300588US

PATIENT
  Age: 70 Year
  Sex: Male

DRUGS (5)
  1. ALPHAGAN P [Suspect]
     Indication: EYE DISORDER
     Dosage: 2 GTT, BOTH EYES BID
     Route: 047
  2. ALPHAGAN P [Suspect]
     Dosage: 1 GTT, LEFT EYE, BID
     Route: 047
  3. LATANOPROST [Concomitant]
     Indication: GLAUCOMA
     Dosage: 2 GTT, QHS
  4. ENALAPRIL [Concomitant]
     Indication: HYPERTENSION
     Dosage: 5 MG, QD
     Route: 048
  5. METOPROLOL [Concomitant]
     Indication: HYPERTENSION
     Dosage: 50 MG, QD
     Route: 048

REACTIONS (7)
  - Eye swelling [Unknown]
  - Hypertension [Unknown]
  - Lacrimation increased [Unknown]
  - Eye irritation [Unknown]
  - Lacrimation increased [Unknown]
  - Foreign body sensation in eyes [Recovered/Resolved]
  - Dry eye [Unknown]
